FAERS Safety Report 6756832-8 (Version None)
Quarter: 2010Q2

REPORT INFORMATION
  Report Type: 
  Country: None (occurrence: None)
  Receive Date: 20100604
  Receipt Date: 20100525
  Transmission Date: 20101027
  Serious: Yes (Hospitalization, Disabling, Other)
  Sender: FDA-Public Use
  Company Number: PHHY2009CA19252

PATIENT
  Sex: Male

DRUGS (15)
  1. ACLASTA [Suspect]
     Indication: OSTEOPOROSIS
     Dosage: 5 MG
     Route: 042
     Dates: start: 20090513
  2. RAMIPRIL [Concomitant]
  3. ASPIRIN [Concomitant]
  4. CHLORAZEPAM [Concomitant]
  5. NICOTINAMIDE [Concomitant]
  6. TAMSULOSIN HCL [Concomitant]
  7. PANTOPRAZOLE [Concomitant]
  8. MODAFINIL [Concomitant]
  9. HYDROCHLOROTHIAZIDE [Concomitant]
  10. NASONEX [Concomitant]
     Dosage: BID
  11. SYMBICORT [Concomitant]
  12. NITROLINGUAL [Concomitant]
     Dosage: PRN
  13. SALBUTAMOL [Concomitant]
     Dosage: PRN
  14. CALCIUM CARBONATE [Concomitant]
     Dosage: 500 UNK, BID
  15. VITAMIN D [Concomitant]
     Dosage: 1000 UNK, QD

REACTIONS (3)
  - PAIN [None]
  - THALAMIC INFARCTION [None]
  - VOMITING [None]
